FAERS Safety Report 9664707 (Version 1)
Quarter: 2013Q4

REPORT INFORMATION
  Report Type: Spontaneous
  Country: FR (occurrence: None)
  Receive Date: 20131031
  Receipt Date: 20131031
  Transmission Date: 20140711
  Serious: Yes (Hospitalization)
  Sender: FDA-Public Use
  Company Number: SYM-2013-12132

PATIENT
  Age: 52 Year
  Sex: Female

DRUGS (2)
  1. FLAGYL (METRONIDAZOLE) (METRONIDAZOLE) [Suspect]
     Indication: DIVERTICULITIS
     Dates: start: 2013
  2. CIFLOX [Suspect]
     Indication: DIVERTICULITIS
     Route: 048
     Dates: start: 2013

REACTIONS (1)
  - Anaphylactic reaction [None]
